FAERS Safety Report 16633305 (Version 1)
Quarter: 2019Q3

REPORT INFORMATION
  Report Type: Spontaneous
  Country: US (occurrence: US)
  Receive Date: 20190725
  Receipt Date: 20190725
  Transmission Date: 20191004
  Serious: No
  Sender: FDA-Public Use
  Company Number: US-TARO-2019TAR00061

PATIENT
  Sex: Male

DRUGS (1)
  1. TERBINAFINE HCL CREAM 1% (JOCK ITCH) [Suspect]
     Active Substance: TERBINAFINE HYDROCHLORIDE
     Dosage: UNK UNK, 1X/DAY
     Route: 061

REACTIONS (1)
  - Pruritus [Not Recovered/Not Resolved]
